FAERS Safety Report 6180625-6 (Version None)
Quarter: 2009Q2

REPORT INFORMATION
  Report Type: 
  Country: None (occurrence: None)
  Receive Date: 20090506
  Receipt Date: 20090427
  Transmission Date: 20091009
  Serious: Yes (Other)
  Sender: FDA-Public Use
  Company Number: PHHY2009US16294

PATIENT
  Age: 22 Year
  Sex: Male

DRUGS (1)
  1. BASILIXIMAB [Suspect]
     Indication: RENAL TRANSPLANT

REACTIONS (5)
  - ARTHRALGIA [None]
  - HYPERTROPHIC OSTEOARTHROPATHY [None]
  - MYALGIA [None]
  - NEUTROPENIA [None]
  - PAIN [None]
